FAERS Safety Report 6862938-5 (Version None)
Quarter: 2010Q2

REPORT INFORMATION
  Report Type: 
  Country: None (occurrence: None)
  Receive Date: 20100528
  Receipt Date: 20100407
  Transmission Date: 20101027
  Serious: No
  Sender: FDA-Public Use
  Company Number: 009911

PATIENT
  Sex: Female

DRUGS (2)
  1. LACOSAMIDE [Suspect]
     Dosage: 300 MG
  2. OXCARBAZEPINE [Suspect]
     Dosage: 2400

REACTIONS (3)
  - BALANCE DISORDER [None]
  - FALL [None]
  - TOOTH LOSS [None]
